FAERS Safety Report 20083787 (Version 1)
Quarter: 2021Q4

REPORT INFORMATION
  Report Type: Spontaneous
  Country: US (occurrence: US)
  Receive Date: 20211118
  Receipt Date: 20211118
  Transmission Date: 20220304
  Serious: No
  Sender: FDA-Public Use
  Company Number: US-SA-SAC20211110000239

PATIENT
  Age: 67 Year
  Sex: Male

DRUGS (22)
  1. DUPIXENT [Suspect]
     Active Substance: DUPILUMAB
     Indication: Asthma
     Dosage: 300MG; QOW
     Route: 058
     Dates: start: 20200409
  2. ATENOLOL [Concomitant]
     Active Substance: ATENOLOL
  3. AZELASTINE [Concomitant]
     Active Substance: AZELASTINE
  4. CLONAZEPAM [Concomitant]
     Active Substance: CLONAZEPAM
  5. CLOPIDOGREL [Concomitant]
     Active Substance: CLOPIDOGREL BISULFATE
  6. FLUOXETINE [Concomitant]
     Active Substance: FLUOXETINE HYDROCHLORIDE
  7. GABAPENTIN [Concomitant]
     Active Substance: GABAPENTIN
  8. IRON [Concomitant]
     Active Substance: IRON
  9. LOSARTAN POTASSIUM [Concomitant]
     Active Substance: LOSARTAN POTASSIUM
  10. MONTELUKAST [Concomitant]
     Active Substance: MONTELUKAST SODIUM
  11. TAMSULOSIN [Concomitant]
     Active Substance: TAMSULOSIN
  12. ALLOPURINOL [Concomitant]
     Active Substance: ALLOPURINOL
  13. TRELEGY ELLIPTA [Concomitant]
     Active Substance: FLUTICASONE FUROATE\UMECLIDINIUM BROMIDE\VILANTEROL TRIFENATATE
  14. BUDESONIDE [Concomitant]
     Active Substance: BUDESONIDE
  15. FAMOTIDINE [Concomitant]
     Active Substance: FAMOTIDINE
  16. FUROSEMIDE [Concomitant]
     Active Substance: FUROSEMIDE
  17. LEVOCETRIZINE HYDROCHLORIDE [Concomitant]
  18. METFORMIN [Concomitant]
     Active Substance: METFORMIN HYDROCHLORIDE
  19. PANTOPRAZOLE [Concomitant]
     Active Substance: PANTOPRAZOLE
  20. POTASSIUM CHLORIDE [Concomitant]
     Active Substance: POTASSIUM CHLORIDE
  21. FERROUS SULFATE [Concomitant]
     Active Substance: FERROUS SULFATE
  22. TRAMADOL HCL [Concomitant]
     Active Substance: TRAMADOL HYDROCHLORIDE

REACTIONS (2)
  - Sciatica [Not Recovered/Not Resolved]
  - Knee operation [Not Recovered/Not Resolved]

NARRATIVE: CASE EVENT DATE: 20210101
